FAERS Safety Report 5843547-3 (Version None)
Quarter: 2008Q3

REPORT INFORMATION
  Report Type: 
  Country: None (occurrence: None)
  Receive Date: 20080813
  Receipt Date: 20080811
  Transmission Date: 20090109
  Serious: Yes (Other)
  Sender: FDA-Public Use
  Company Number: AU-MERCK-0711AUS00141

PATIENT
  Sex: Female

DRUGS (2)
  1. FOSAMAX PLUS D [Suspect]
     Route: 048
  2. FOSAMAX [Concomitant]
     Route: 065
     Dates: start: 20020101

REACTIONS (2)
  - LUMBAR VERTEBRAL FRACTURE [None]
  - OSTEONECROSIS [None]
